FAERS Safety Report 23750750 (Version 5)
Quarter: 2024Q4

REPORT INFORMATION
  Report Type: Report from Study
  Country: CA (occurrence: CA)
  Receive Date: 20240417
  Receipt Date: 20241126
  Transmission Date: 20250115
  Serious: Yes (Other)
  Sender: APOTEX
  Company Number: CA-APOTEX-2024AP004640

PATIENT
  Sex: Male

DRUGS (3)
  1. LENALIDOMIDE [Suspect]
     Active Substance: LENALIDOMIDE
     Indication: Plasma cell myeloma refractory
     Dosage: 10 MILLIGRAM, Q.H.S. (TAKE 1 CAPSULE (10MG) BY MOUTH NIGHTLY AT BEDTIME - SWALLOW CAPSULES WHOLE)
     Route: 048
     Dates: start: 20230324
  2. LENALIDOMIDE [Suspect]
     Active Substance: LENALIDOMIDE
     Dosage: 10 MILLIGRAM, Q.H.S. (TAKE 1 CAPSULE (10MG) BY MOUTH NIGHTLY AT BEDTIME - SWALLOW CAPSULES WHOLE)
     Route: 048
     Dates: start: 20230324
  3. LENALIDOMIDE [Suspect]
     Active Substance: LENALIDOMIDE
     Dosage: 10 MILLIGRAM, Q.H.S. (TAKE 1 CAPSULE (10MG) BY MOUTH NIGHTLY AT BEDTIME - SWALLOW CAPSULES WHOLE)
     Route: 048
     Dates: start: 20230324

REACTIONS (7)
  - Lower respiratory tract infection [Unknown]
  - Illness [Unknown]
  - Product dose omission issue [Unknown]
  - Treatment noncompliance [Unknown]
  - Off label use [Unknown]
  - Peripheral swelling [Unknown]
  - Blood calcium decreased [Unknown]

NARRATIVE: CASE EVENT DATE: 20240101
